FAERS Safety Report 7518718-0 (Version None)
Quarter: 2011Q2

REPORT INFORMATION
  Report Type: 
  Country: None (occurrence: None)
  Receive Date: 20110602
  Receipt Date: 20110523
  Transmission Date: 20111010
  Serious: Yes (Hospitalization, Other)
  Sender: FDA-Public Use
  Company Number: PHHY2011CH39263

PATIENT
  Age: 55 Year
  Sex: Male

DRUGS (8)
  1. TEGRETOL [Suspect]
     Dosage: UNK
     Dates: start: 20110316, end: 20110326
  2. LERCANIDIPINE [Concomitant]
  3. WELLBUTRIN SR [Interacting]
     Dosage: 450 MG QD
  4. COVERSUM N COMBI [Concomitant]
  5. TEGRETOL [Interacting]
     Dosage: 600 MG, UNK
     Dates: start: 20110326
  6. TEGRETOL [Interacting]
     Dosage: 400 MG, DAILY
  7. WELLBUTRIN SR [Interacting]
     Dosage: 300 MG, QD
  8. VALIUM [Concomitant]

REACTIONS (3)
  - DRUG INTERACTION [None]
  - ATAXIA [None]
  - ANTICONVULSANT DRUG LEVEL INCREASED [None]
